FAERS Safety Report 5139358-7 (Version None)
Quarter: 2006Q4

REPORT INFORMATION
  Report Type: 
  Country: None (occurrence: None)
  Receive Date: 20061024
  Receipt Date: 20061013
  Transmission Date: 20070319
  Serious: No
  Sender: FDA-Public Use
  Company Number: 2006AL003165

PATIENT
  Age: 45 Year
  Sex: Female

DRUGS (5)
  1. DEXAMETHASONE ELIXIR USP, 0.5 MG/5 ML (ALPHARMA) [Suspect]
     Indication: B-CELL LYMPHOMA
  2. FLUDARABINE [Concomitant]
  3. MITOXANTRONE [Concomitant]
  4. ANTI-CD20 [Concomitant]
  5. RITUXIMAB [Concomitant]

REACTIONS (1)
  - ACUTE PROMYELOCYTIC LEUKAEMIA [None]
